FAERS Safety Report 21040864 (Version 3)
Quarter: 2022Q4

REPORT INFORMATION
  Report Type: Report from Study
  Country: GB (occurrence: GB)
  Receive Date: 20220704
  Receipt Date: 20221210
  Transmission Date: 20230113
  Serious: Yes (Hospitalization)
  Sender: FDA-Public Use
  Company Number: GB-ABBVIE-22K-167-4448957-00

PATIENT
  Age: 67 Year
  Sex: Male

DRUGS (5)
  1. CARBIDOPA\LEVODOPA [Suspect]
     Active Substance: CARBIDOPA\LEVODOPA
     Indication: Parkinson^s disease
     Dosage: CR 5.4, ED 0.7, NIGHT CR 3.5?20 MG/ML 5 MG/ML?FREQUENCY: AS REQUIRED
     Route: 050
     Dates: end: 2022
  2. CARBIDOPA\LEVODOPA [Suspect]
     Active Substance: CARBIDOPA\LEVODOPA
     Dosage: CR: NIGHT RATE: 3.3MLS, DAY RATE:5.3MLS
     Route: 050
     Dates: start: 2022, end: 2022
  3. ENTACAPONE [Concomitant]
     Active Substance: ENTACAPONE
     Indication: Product used for unknown indication
     Dosage: AT 24:00, 09:00, 18:00
  4. BENSERAZIDE HYDROCHLORIDE\LEVODOPA [Concomitant]
     Active Substance: BENSERAZIDE HYDROCHLORIDE\LEVODOPA
     Indication: Product used for unknown indication
     Dosage: 25/100 MG?AS REQUIRED; ;
  5. BENSERAZIDE HYDROCHLORIDE\LEVODOPA [Concomitant]
     Active Substance: BENSERAZIDE HYDROCHLORIDE\LEVODOPA
     Indication: Product used for unknown indication
     Dosage: 25/100 MG?AS REQUIRED

REACTIONS (14)
  - Blood iron decreased [Not Recovered/Not Resolved]
  - Malaise [Not Recovered/Not Resolved]
  - Liquid product physical issue [Not Recovered/Not Resolved]
  - Device issue [Not Recovered/Not Resolved]
  - Peripheral swelling [Unknown]
  - Mobility decreased [Not Recovered/Not Resolved]
  - Device occlusion [Not Recovered/Not Resolved]
  - Poor quality sleep [Not Recovered/Not Resolved]
  - Incorrect dose administered [Not Recovered/Not Resolved]
  - Fall [Not Recovered/Not Resolved]
  - Product storage error [Unknown]
  - Anaemia [Not Recovered/Not Resolved]
  - Blood pressure decreased [Not Recovered/Not Resolved]
  - Memory impairment [Not Recovered/Not Resolved]

NARRATIVE: CASE EVENT DATE: 20220101
